FAERS Safety Report 23935987 (Version 4)
Quarter: 2024Q2

REPORT INFORMATION
  Report Type: Spontaneous
  Country: US (occurrence: US)
  Receive Date: 20240604
  Receipt Date: 20240625
  Transmission Date: 20240716
  Serious: No
  Sender: FDA-Public Use
  Company Number: US-ELI_LILLY_AND_COMPANY-US202405018725

PATIENT
  Age: 68 Year
  Sex: Female

DRUGS (8)
  1. EMGALITY [Suspect]
     Active Substance: GALCANEZUMAB-GNLM
     Indication: Migraine
     Dosage: 120 MG, UNKNOWN
     Route: 065
     Dates: start: 202402
  2. EMGALITY [Suspect]
     Active Substance: GALCANEZUMAB-GNLM
     Indication: Migraine
     Dosage: 120 MG, UNKNOWN
     Route: 065
     Dates: start: 202402
  3. EMGALITY [Suspect]
     Active Substance: GALCANEZUMAB-GNLM
     Indication: Migraine
     Dosage: 120 MG, UNKNOWN
     Route: 065
     Dates: start: 202402
  4. EMGALITY [Suspect]
     Active Substance: GALCANEZUMAB-GNLM
     Indication: Migraine
     Dosage: 120 MG, UNKNOWN
     Route: 065
     Dates: start: 202402
  5. EMGALITY [Suspect]
     Active Substance: GALCANEZUMAB-GNLM
     Indication: Cluster headache
     Dosage: 120 MG, UNKNOWN
     Route: 065
     Dates: start: 202403
  6. EMGALITY [Suspect]
     Active Substance: GALCANEZUMAB-GNLM
     Indication: Cluster headache
     Dosage: 120 MG, UNKNOWN
     Route: 065
     Dates: start: 202403
  7. EMGALITY [Suspect]
     Active Substance: GALCANEZUMAB-GNLM
     Indication: Cluster headache
     Dosage: 120 MG, UNKNOWN
     Route: 065
     Dates: start: 202403
  8. EMGALITY [Suspect]
     Active Substance: GALCANEZUMAB-GNLM
     Indication: Cluster headache
     Dosage: 120 MG, UNKNOWN
     Route: 065
     Dates: start: 202403

REACTIONS (4)
  - Arthralgia [Recovered/Resolved]
  - Injection site pain [Unknown]
  - Therapeutic response shortened [Not Recovered/Not Resolved]
  - Injection site bruising [Recovered/Resolved]
